FAERS Safety Report 4503792-6 (Version None)
Quarter: 2004Q4

REPORT INFORMATION
  Report Type: 
  Country: None (occurrence: None)
  Receive Date: 20041115
  Receipt Date: 20041029
  Transmission Date: 20050328
  Serious: Yes (Disabling)
  Sender: FDA-Public Use
  Company Number: 2004SE05275

PATIENT
  Age: 51 Year
  Sex: Male

DRUGS (1)
  1. MARCAINE [Suspect]
     Indication: SPINAL ANAESTHESIA
     Dosage: 16 MG ONCE IT
     Route: 037
     Dates: start: 20010614, end: 20010614

REACTIONS (16)
  - ABDOMINAL TENDERNESS [None]
  - ACTIVITIES OF DAILY LIVING IMPAIRED [None]
  - BLADDER DISORDER [None]
  - DYSAESTHESIA [None]
  - EXTRADURAL HAEMATOMA [None]
  - FLANK PAIN [None]
  - HYPERAESTHESIA [None]
  - IMPAIRED WORK ABILITY [None]
  - INJECTION SITE PAIN [None]
  - INTERVERTEBRAL DISC DEGENERATION [None]
  - NERVE INJURY [None]
  - OEDEMA [None]
  - PARAESTHESIA [None]
  - SENSATION OF PRESSURE [None]
  - SOFT TISSUE DISORDER [None]
  - SPONDYLOSIS [None]
